FAERS Safety Report 9176015 (Version 1)
Quarter: 2013Q1

REPORT INFORMATION
  Report Type: Spontaneous
  Country: US (occurrence: US)
  Receive Date: 20130320
  Receipt Date: 20130320
  Transmission Date: 20140127
  Serious: Yes (Other)
  Sender: FDA-Public Use
  Company Number: CHPA2013US004773

PATIENT
  Age: 69 Year
  Sex: Female

DRUGS (2)
  1. 4 WAY MENTHOLATED NASAL SPRAY [Suspect]
     Indication: NASAL CONGESTION
     Dosage: 1 SPRAY/NOSTRIL IN PM/AM
     Route: 045
  2. 4 WAY MENTHOLATED NASAL SPRAY [Suspect]
     Indication: NASAL DISCOMFORT

REACTIONS (4)
  - Lower limb fracture [Unknown]
  - Off label use [Unknown]
  - Incorrect dose administered [Unknown]
  - Incorrect drug administration duration [Unknown]
